FAERS Safety Report 16189114 (Version 3)
Quarter: 2020Q4

REPORT INFORMATION
  Report Type: Spontaneous
  Country: US (occurrence: US)
  Receive Date: 20190412
  Receipt Date: 20201229
  Transmission Date: 20210113
  Serious: Yes (Hospitalization)
  Sender: FDA-Public Use
  Company Number: US-JNJFOC-20190344469

PATIENT
  Age: 46 Year
  Sex: Male

DRUGS (2)
  1. ASPRIN [Suspect]
     Active Substance: ASPIRIN
     Indication: PRODUCT USED FOR UNKNOWN INDICATION
     Route: 048
  2. XARELTO [Suspect]
     Active Substance: RIVAROXABAN
     Indication: DEEP VEIN THROMBOSIS
     Dosage: 15 MG TWICE DAILY FOR 19 DAYS, 20 MG ONCE DAILY.
     Route: 048
     Dates: start: 20161116, end: 20161121

REACTIONS (3)
  - Duodenal ulcer haemorrhage [Recovering/Resolving]
  - Acute kidney injury [Recovered/Resolved]
  - Shock haemorrhagic [Recovering/Resolving]

NARRATIVE: CASE EVENT DATE: 20161118
